FAERS Safety Report 8093121-6 (Version None)
Quarter: 2012Q1

REPORT INFORMATION
  Report Type: 
  Country: None (occurrence: None)
  Receive Date: 20120128
  Receipt Date: 20110928
  Transmission Date: 20120608
  Serious: Yes (Other)
  Sender: FDA-Public Use
  Company Number: US-ABBOTT-11P-163-0849883-00

PATIENT
  Sex: Male
  Weight: 99.88 kg

DRUGS (9)
  1. METFORMIN HCL [Concomitant]
     Indication: DIABETES MELLITUS
  2. PRILOSEC [Concomitant]
     Indication: PRODUCT USED FOR UNKNOWN INDICATION
  3. VYTORIN [Concomitant]
     Indication: PRODUCT USED FOR UNKNOWN INDICATION
  4. NIASPAN [Concomitant]
     Indication: CARDIAC DISORDER
  5. METOPROLOL TARTRATE [Concomitant]
     Indication: CARDIAC DISORDER
  6. AMLODIPINE [Concomitant]
     Indication: CARDIAC DISORDER
  7. ASPIRIN [Concomitant]
     Indication: CARDIAC DISORDER
  8. HUMIRA [Suspect]
     Indication: PSORIASIS
     Route: 058
     Dates: start: 20080801, end: 20110901
  9. PLAVIX [Concomitant]
     Indication: CARDIAC DISORDER

REACTIONS (1)
  - PROSTATE CANCER [None]
